FAERS Safety Report 12751618 (Version 1)
Quarter: 2016Q3

REPORT INFORMATION
  Report Type: Spontaneous
  Country: MY (occurrence: MY)
  Receive Date: 20160915
  Receipt Date: 20160915
  Transmission Date: 20161109
  Serious: Yes (Other)
  Sender: FDA-Public Use
  Company Number: MY-JAZZ-2015-MY-017753

PATIENT
  Sex: Male

DRUGS (1)
  1. ERWINASE [Suspect]
     Active Substance: ASPARAGINASE ERWINIA CHRYSANTHEMI

REACTIONS (2)
  - Posterior reversible encephalopathy syndrome [Unknown]
  - Tumour lysis syndrome [Unknown]
